FAERS Safety Report 6097178-3 (Version None)
Quarter: 2009Q1

REPORT INFORMATION
  Report Type: 
  Country: None (occurrence: None)
  Receive Date: 20090227
  Receipt Date: 20090223
  Transmission Date: 20090719
  Serious: Yes (Other)
  Sender: FDA-Public Use
  Company Number: A0761400A

PATIENT
  Sex: Male

DRUGS (11)
  1. ADVAIR HFA [Suspect]
     Indication: ASTHMA
     Dosage: 1PUFF TWICE PER DAY
     Route: 055
  2. LABETALOL HCL [Concomitant]
  3. BUMETANIDE [Concomitant]
  4. MINOXIDIL [Concomitant]
  5. LOTREL [Concomitant]
  6. CALCIUM [Concomitant]
  7. VITAMIN D [Concomitant]
  8. CORTEF [Concomitant]
  9. SYNTHROID [Concomitant]
  10. ZANTAC [Concomitant]
  11. ALLOPURINOL [Concomitant]

REACTIONS (13)
  - BLOOD POTASSIUM DECREASED [None]
  - BLOOD PRESSURE INCREASED [None]
  - CHOKING [None]
  - CHRONIC OBSTRUCTIVE PULMONARY DISEASE [None]
  - DRUG INEFFECTIVE [None]
  - DRY MOUTH [None]
  - DYSPHAGIA [None]
  - DYSPNOEA [None]
  - EYE DISCHARGE [None]
  - PNEUMONIA [None]
  - RESORPTION BONE INCREASED [None]
  - SWELLING [None]
  - TONSILLAR DISORDER [None]
